FAERS Safety Report 5006485-4 (Version None)
Quarter: 2006Q2

REPORT INFORMATION
  Report Type: 
  Country: None (occurrence: None)
  Receive Date: 20060516
  Receipt Date: 20060502
  Transmission Date: 20061013
  Serious: Yes (Disabling)
  Sender: FDA-Public Use
  Company Number: 2003114254

PATIENT
  Sex: Female
  Weight: 108.8633 kg

DRUGS (11)
  1. NARDIL [Suspect]
     Indication: ANXIETY
     Dosage: SEE IMAGE
     Route: 048
     Dates: start: 19870101
  2. NARDIL [Suspect]
     Indication: DEPRESSION
     Dosage: SEE IMAGE
     Route: 048
     Dates: start: 19870101
  3. NARDIL [Suspect]
  4. NARDIL [Suspect]
  5. NARDIL [Suspect]
  6. NARDIL [Suspect]
  7. NARDIL [Suspect]
  8. NARDIL [Suspect]
  9. ALTACE [Concomitant]
  10. CELEXA [Concomitant]
  11. PREMPRO [Concomitant]

REACTIONS (28)
  - ACTIVITIES OF DAILY LIVING IMPAIRED [None]
  - ADVERSE EVENT [None]
  - ANXIETY [None]
  - BALANCE DISORDER [None]
  - CONDITION AGGRAVATED [None]
  - CONSTIPATION [None]
  - CRYING [None]
  - DEPRESSION [None]
  - DIARRHOEA [None]
  - DIFFICULTY IN WALKING [None]
  - DRUG INEFFECTIVE [None]
  - DYSARTHRIA [None]
  - EMOTIONAL DISTRESS [None]
  - FEELING ABNORMAL [None]
  - FLATULENCE [None]
  - GAIT DISTURBANCE [None]
  - IMPAIRED DRIVING ABILITY [None]
  - INSOMNIA [None]
  - MALAISE [None]
  - NERVOUSNESS [None]
  - PARAESTHESIA [None]
  - PHARMACEUTICAL PRODUCT COMPLAINT [None]
  - POOR QUALITY DRUG ADMINISTERED [None]
  - SOMNOLENCE [None]
  - SUICIDAL IDEATION [None]
  - THERAPEUTIC RESPONSE UNEXPECTED WITH DRUG SUBSTITUTION [None]
  - TREMOR [None]
  - VOMITING [None]
